FAERS Safety Report 5149743-5 (Version None)
Quarter: 2006Q4

REPORT INFORMATION
  Report Type: 
  Country: None (occurrence: None)
  Receive Date: 20061113
  Receipt Date: 20061024
  Transmission Date: 20070319
  Serious: Yes (Other)
  Sender: FDA-Public Use
  Company Number: US-AMGEN-US197981

PATIENT
  Sex: Male
  Weight: 96.2 kg

DRUGS (4)
  1. ARANESP [Suspect]
     Indication: ANAEMIA OF MALIGNANT DISEASE
     Route: 058
     Dates: start: 20050701, end: 20060717
  2. PROCRIT [Suspect]
     Indication: ANAEMIA OF MALIGNANT DISEASE
     Route: 058
     Dates: start: 20040201, end: 20050701
  3. CYCLOSPORINE [Concomitant]
     Route: 048
     Dates: start: 20060801, end: 20061001
  4. CLADRIBINE [Concomitant]
     Dates: start: 20060119, end: 20060604

REACTIONS (2)
  - APLASIA PURE RED CELL [None]
  - THERAPY NON-RESPONDER [None]
